FAERS Safety Report 6124627-4 (Version None)
Quarter: 2009Q1

REPORT INFORMATION
  Report Type: 
  Country: None (occurrence: None)
  Receive Date: 20090319
  Receipt Date: 20090311
  Transmission Date: 20090719
  Serious: Yes (Other)
  Sender: FDA-Public Use
  Company Number: B0559214A

PATIENT
  Age: 41 Year
  Sex: Female

DRUGS (7)
  1. MELPHALAN [Suspect]
     Dosage: 140MGM2 PER DAY
     Route: 042
  2. RANIMUSTINE [Suspect]
     Route: 042
  3. ETOPOSIDE [Suspect]
     Dosage: 200MGM2 PER DAY
     Route: 042
  4. CYTARABINE [Suspect]
     Dosage: 200MGM2 PER DAY
  5. STAVUDINE [Concomitant]
  6. LAMIVUDINE [Concomitant]
  7. NELFINAVIR [Concomitant]

REACTIONS (4)
  - ANOREXIA [None]
  - DIARRHOEA [None]
  - FEBRILE NEUTROPENIA [None]
  - STOMATITIS [None]
